FAERS Safety Report 10033108 (Version 2)
Quarter: 2014Q1

REPORT INFORMATION
  Report Type: Report from Study
  Country: US (occurrence: US)
  Receive Date: 20140324
  Receipt Date: 20140324
  Transmission Date: 20141002
  Serious: Yes (Other)
  Sender: FDA-Public Use
  Company Number: US-ACTELION-A-US2011-51696

PATIENT
  Age: 48 Year
  Sex: Female

DRUGS (1)
  1. VENTAVIS [Suspect]
     Indication: PULMONARY ARTERIAL HYPERTENSION
     Dosage: 10 MCG, QID
     Route: 055
     Dates: start: 20110710

REACTIONS (9)
  - Chemotherapy [Unknown]
  - Myalgia [Unknown]
  - Trismus [Unknown]
  - Dysphagia [Unknown]
  - Abdominal pain upper [Unknown]
  - Headache [Unknown]
  - Pain in jaw [Unknown]
  - Nausea [Unknown]
  - Muscle spasms [Unknown]
